FAERS Safety Report 5247631-7 (Version None)
Quarter: 2007Q1

REPORT INFORMATION
  Report Type: 
  Country: None (occurrence: None)
  Receive Date: 20070220
  Receipt Date: 20070209
  Transmission Date: 20070707
  Serious: No
  Sender: FDA-Public Use
  Company Number: 235809

PATIENT
  Age: 58 Year
  Sex: Female

DRUGS (13)
  1. XOLAIR [Suspect]
     Indication: ASTHMA
     Dosage: 375 MG, UNK, SUBCUTANEOUS
     Route: 058
     Dates: start: 20070126
  2. ALLEGRA [Concomitant]
  3. CLARITIN [Concomitant]
  4. SINGULAIR [Concomitant]
  5. ADVAIR DISKUS 100/50 [Concomitant]
  6. PRILOSEC [Concomitant]
  7. ALBUTEROL (ALBUTEROL/ALBUTEROL SULFATE) [Concomitant]
  8. AVANDAMET (METFORMIN, ROSIGLITAZONE MALEATE) [Concomitant]
  9. FEMHRT [Concomitant]
  10. SOMA [Concomitant]
  11. PREVACID [Concomitant]
  12. DOXEPIN (DOXEPIN HYDROCHLORIDE) [Concomitant]
  13. LEXAPRO [Concomitant]

REACTIONS (4)
  - ASTHMA [None]
  - BLOOD IMMUNOGLOBULIN E INCREASED [None]
  - CONDITION AGGRAVATED [None]
  - INJECTION SITE RASH [None]
